FAERS Safety Report 20474487 (Version 1)
Quarter: 2022Q1

REPORT INFORMATION
  Report Type: Spontaneous
  Country: AR (occurrence: AR)
  Receive Date: 20220215
  Receipt Date: 20220215
  Transmission Date: 20220424
  Serious: Yes (Death)
  Sender: FDA-Public Use
  Company Number: AR-PFIZER INC-202200227796

PATIENT
  Age: 63 Year
  Sex: Female

DRUGS (1)
  1. VIZIMPRO [Suspect]
     Active Substance: DACOMITINIB
     Indication: Lung cancer metastatic
     Dosage: 45 MG, DAILY
     Dates: start: 20211214

REACTIONS (1)
  - Death [Fatal]
